FAERS Safety Report 7316540-1 (Version None)
Quarter: 2011Q1

REPORT INFORMATION
  Report Type: 
  Country: None (occurrence: None)
  Receive Date: 20110226
  Receipt Date: 20110111
  Transmission Date: 20110831
  Serious: No
  Sender: FDA-Public Use
  Company Number: US-ALLERGAN-1009041US

PATIENT
  Age: 69 Year
  Sex: Female
  Weight: 57.596 kg

DRUGS (2)
  1. BOTOX COSMETIC [Suspect]
     Indication: SKIN WRINKLING
     Dosage: 50 UNITS, SINGLE
     Route: 030
     Dates: start: 20100421, end: 20100421
  2. BOTOX COSMETIC [Suspect]

REACTIONS (2)
  - SKIN DISORDER [None]
  - FACE OEDEMA [None]
